FAERS Safety Report 12783441 (Version 1)
Quarter: 2016Q3

REPORT INFORMATION
  Report Type: Spontaneous
  Country: US (occurrence: US)
  Receive Date: 20160927
  Receipt Date: 20160927
  Transmission Date: 20161109
  Serious: No
  Sender: FDA-Public Use
  Company Number: US-DRREDDYS-USA/USA/15/0049905

PATIENT
  Sex: Female

DRUGS (1)
  1. AMOXICILLIN CAPSULES [Suspect]
     Active Substance: AMOXICILLIN
     Indication: GONORRHOEA
     Route: 065

REACTIONS (4)
  - Urinary tract infection [Not Recovered/Not Resolved]
  - Drug ineffective [Unknown]
  - Product quality issue [Unknown]
  - Fungal infection [Not Recovered/Not Resolved]
